FAERS Safety Report 4455118-4 (Version None)
Quarter: 2004Q3

REPORT INFORMATION
  Report Type: 
  Country: None (occurrence: None)
  Receive Date: 20040917
  Receipt Date: 20040906
  Transmission Date: 20050211
  Serious: Yes (Disabling)
  Sender: FDA-Public Use
  Company Number: 2004-BP-03174YA

PATIENT
  Age: 74 Year
  Sex: Male

DRUGS (4)
  1. FLOMAX [Suspect]
     Indication: BENIGN PROSTATIC HYPERPLASIA
     Dosage: 0.4 MG, PO
     Route: 048
     Dates: start: 20030626, end: 20040401
  2. NIFEDIPINE [Concomitant]
  3. ERYTHROMYCIN [Concomitant]
  4. CLOTRIMAZOLE [Concomitant]

REACTIONS (3)
  - CATARACT [None]
  - TRANSIENT ISCHAEMIC ATTACK [None]
  - VISUAL ACUITY REDUCED [None]
